FAERS Safety Report 7007851-8 (Version None)
Quarter: 2010Q3

REPORT INFORMATION
  Report Type: 
  Country: None (occurrence: None)
  Receive Date: 20100922
  Receipt Date: 20100913
  Transmission Date: 20110219
  Serious: Yes (Other)
  Sender: FDA-Public Use
  Company Number: ES-ROCHE-727754

PATIENT
  Sex: Male

DRUGS (8)
  1. ALL-TRANS-RETINOIC ACID [Suspect]
     Dosage: INDUCTION THERAPY ON DAYS 2, 4, 6 AND 8.
     Route: 048
  2. ALL-TRANS-RETINOIC ACID [Suspect]
     Dosage: MAINTENANCE THERAPY FOR 15 DAYS EVERY 3 MONTHS FOR 2 YEARS
     Route: 048
  3. IDARUBICIN HCL [Suspect]
     Dosage: INDUCTION THERAPY GIVEN AS INTRAVENOUS BOLUS ON DAYS 2,4,6 AND 8.
     Route: 042
  4. IDARUBICIN HCL [Suspect]
     Dosage: FIRST CONSOLIDATION CYCLE FOR 4 DAYS
     Route: 042
  5. IDARUBICIN HCL [Suspect]
     Dosage: THIRD CONSOLIDATION CYCLE FOR 1 DAY.
     Route: 042
  6. MITOXANTRONE [Suspect]
     Dosage: MITOXANTRONE GIVEN AS SECOND CONSOLIDATION CYCLE FOR 5 DAYS.
     Route: 065
  7. MERCAPTOPURINE [Suspect]
     Dosage: MAINTENANCE THERAPY FOR 15 DAYS EVERY 3 MONTHS FOR 2 YEARS.
     Route: 048
  8. METHOTREXATE [Suspect]
     Dosage: AS MAINTENANCE THERAPY FOR 15 DAYS EVERY 3 MONTHS FOR 2 YEARS.
     Route: 030

REACTIONS (1)
  - ACUTE MYELOID LEUKAEMIA [None]
